FAERS Safety Report 5669890-9 (Version None)
Quarter: 2008Q1

REPORT INFORMATION
  Report Type: 
  Country: None (occurrence: None)
  Receive Date: 20080317
  Receipt Date: 20080306
  Transmission Date: 20080703
  Serious: No
  Sender: FDA-Public Use
  Company Number: GB-BAXTER-2007BH007196

PATIENT
  Age: 4 Month
  Sex: Male
  Weight: 5 kg

DRUGS (10)
  1. GENTAMICIN [Suspect]
     Indication: CYSTIC FIBROSIS
     Route: 042
     Dates: start: 20021123, end: 20021207
  2. GENTAMICIN [Suspect]
     Indication: PSEUDOMONAS INFECTION
     Route: 042
     Dates: start: 20021123, end: 20021207
  3. COLOMYCIN [Suspect]
     Indication: DRUG USE FOR UNKNOWN INDICATION
     Dosage: DOSE UNIT:UNKNOWN
     Route: 055
  4. CEFTAZIDIME SODIUM [Suspect]
     Indication: CYSTIC FIBROSIS
     Route: 042
     Dates: start: 20021123, end: 20021207
  5. CEFTAZIDIME SODIUM [Suspect]
     Indication: PSEUDOMONAS INFECTION
     Route: 042
     Dates: start: 20021123, end: 20021207
  6. ATROVENT [Concomitant]
     Indication: BRONCHOSPASM
     Route: 055
     Dates: start: 20021119, end: 20021209
  7. CIPROFLOXACIN [Concomitant]
     Indication: PSEUDOMONAS INFECTION
     Route: 048
     Dates: start: 20021122, end: 20021123
  8. COLISTIN SULFATE [Concomitant]
     Indication: PSEUDOMONAS INFECTION
     Dates: start: 20021122, end: 20021123
  9. CREON [Concomitant]
     Indication: NUTRITIONAL SUPPORT
     Route: 048
     Dates: start: 20020903
  10. FLUCLOXACILLIN [Concomitant]
     Indication: PROPHYLAXIS
     Route: 048
     Dates: start: 20020903, end: 20021209

REACTIONS (3)
  - DIARRHOEA [None]
  - RENAL FAILURE ACUTE [None]
  - RENAL TUBULAR NECROSIS [None]
